FAERS Safety Report 9115396 (Version 1)
Quarter: 2013Q1

REPORT INFORMATION
  Report Type: Spontaneous
  Country: US (occurrence: None)
  Receive Date: 20130221
  Receipt Date: 20130221
  Transmission Date: 20140127
  Serious: Yes (Other)
  Sender: FDA-Public Use
  Company Number: None

PATIENT
  Age: 79 Year
  Sex: Female

DRUGS (2)
  1. HUMIRA 40MG/0.8ML PEN [Suspect]
     Indication: RHEUMATOID ARTHRITIS
     Dosage: 40MG/0.8ML, EVERY OTHER WEEK SQ
     Route: 058
     Dates: start: 20120418, end: 20130213
  2. HUMIRA 40MG/0.8ML PEN [Suspect]
     Indication: PSORIASIS
     Dosage: 40MG/0.8ML, EVERY OTHER WEEK SQ
     Route: 058
     Dates: start: 20120418, end: 20130213

REACTIONS (2)
  - Rash pruritic [None]
  - Rash erythematous [None]
